FAERS Safety Report 8419036-9 (Version None)
Quarter: 2012Q2

REPORT INFORMATION
  Report Type: 
  Country: None (occurrence: None)
  Receive Date: 20120607
  Receipt Date: 20120604
  Transmission Date: 20120825
  Serious: Yes (Other)
  Sender: FDA-Public Use
  Company Number: PHHY2012BE033243

PATIENT
  Age: 81 Year
  Sex: Male
  Weight: 76 kg

DRUGS (10)
  1. CLOPIDOGREL [Concomitant]
     Indication: CARDIOVASCULAR DISORDER
     Dosage: 75 MG, UNK
  2. ONBREZ [Suspect]
     Indication: CHRONIC OBSTRUCTIVE PULMONARY DISEASE
     Dates: start: 20120119, end: 20120207
  3. CALCIUM CARBONATE [Concomitant]
     Indication: OSTEOPOROSIS
     Dosage: 750 MG, DAILY
  4. D-CURE [Concomitant]
     Indication: OSTEOPOROSIS
  5. LAMICTAL [Concomitant]
     Indication: EPILEPSY
     Dosage: 75 MG, BID
  6. SIMVASTATIN [Concomitant]
     Indication: HYPERCHOLESTEROLAEMIA
     Dosage: 20 MG, QD
  7. SPIRIVA [Concomitant]
     Indication: CHRONIC OBSTRUCTIVE PULMONARY DISEASE
  8. ZOLPIDEM [Concomitant]
     Indication: INSOMNIA
  9. BISOPROLOL FUMARATE [Concomitant]
     Indication: HYPERTENSION
     Dosage: 0.5 DF, QD
  10. PANTOPRAZOLE SODIUM (PANTOMED) [Concomitant]
     Indication: GASTROOESOPHAGEAL REFLUX DISEASE
     Dosage: 20 MG, UNK

REACTIONS (2)
  - ABDOMINAL PAIN UPPER [None]
  - CHEST PAIN [None]
